FAERS Safety Report 10494223 (Version 1)
Quarter: 2014Q4

REPORT INFORMATION
  Report Type: Spontaneous
  Country: US (occurrence: US)
  Receive Date: 20141003
  Receipt Date: 20141003
  Transmission Date: 20150528
  Serious: Yes (Hospitalization, Disabling, Other)
  Sender: FDA-Public Use
  Company Number: US-GLAXOSMITHKLINE-A1078396A

PATIENT
  Age: 8 Year
  Sex: Male

DRUGS (9)
  1. LAMICTAL [Suspect]
     Active Substance: LAMOTRIGINE
     Indication: SEIZURE
     Route: 048
     Dates: start: 2006
  2. PREDNISONE. [Suspect]
     Active Substance: PREDNISONE
     Indication: TUBULOINTERSTITIAL NEPHRITIS
     Dosage: 30MG SEE DOSAGE TEXT
     Route: 048
  3. ZOFRAN [Concomitant]
     Active Substance: ONDANSETRON HYDROCHLORIDE
  4. CLARITIN [Concomitant]
     Active Substance: LORATADINE
  5. PEPCID [Concomitant]
     Active Substance: FAMOTIDINE
  6. LAMICTAL XR [Suspect]
     Active Substance: LAMOTRIGINE
     Indication: COMPLEX PARTIAL SEIZURES
     Route: 065
  7. LAMOTRIGINE. [Suspect]
     Active Substance: LAMOTRIGINE
     Indication: SEIZURE
     Route: 048
     Dates: start: 2006, end: 201306
  8. ATIVAN [Concomitant]
     Active Substance: LORAZEPAM
  9. COMBIGAN [Concomitant]
     Active Substance: BRIMONIDINE TARTRATE\TIMOLOL MALEATE

REACTIONS (24)
  - Tubulointerstitial nephritis [Recovering/Resolving]
  - Mouth swelling [Recovering/Resolving]
  - Anxiety [Unknown]
  - Drug hypersensitivity [Unknown]
  - Vomiting [Recovering/Resolving]
  - Eye swelling [Recovering/Resolving]
  - Swelling face [Recovering/Resolving]
  - Polydipsia [Recovered/Resolved]
  - Blood pressure increased [Unknown]
  - Prehypertension [Unknown]
  - Blood calcium increased [Unknown]
  - Nausea [Recovering/Resolving]
  - Uveitis [Recovering/Resolving]
  - Blister [Recovering/Resolving]
  - Weight decreased [Unknown]
  - Blood creatinine increased [Recovering/Resolving]
  - Swelling [Recovering/Resolving]
  - Urticaria [Recovering/Resolving]
  - Headache [Recovering/Resolving]
  - Increased appetite [Unknown]
  - Renal injury [Recovering/Resolving]
  - Speech disorder [Recovering/Resolving]
  - Eosinophilia [Recovered/Resolved]
  - Polyuria [Recovered/Resolved]

NARRATIVE: CASE EVENT DATE: 2006
